FAERS Safety Report 7097237-2 (Version None)
Quarter: 2010Q4

REPORT INFORMATION
  Report Type: 
  Country: None (occurrence: None)
  Receive Date: 20101111
  Receipt Date: 20100514
  Transmission Date: 20110411
  Serious: No
  Sender: FDA-Public Use
  Company Number: US-KINGPHARMUSA00001-K201000600

PATIENT
  Sex: Male

DRUGS (9)
  1. LEVOXYL [Suspect]
     Indication: HYPOTHYROIDISM
     Dosage: 175 MCG, QD
     Route: 048
  2. HYDROCORT [Concomitant]
     Dosage: UNK
  3. DILTIAZEM [Concomitant]
     Indication: HYPERTENSION
     Dosage: 240 MG, QD
  4. LISINOPRIL [Concomitant]
     Indication: HYPERTENSION
     Dosage: 15 MG, QD
  5. FORTAMET [Concomitant]
     Indication: DIABETES MELLITUS
     Dosage: 1000 MG, BID
  6. GLYBURIDE [Concomitant]
     Indication: DIABETES MELLITUS
     Dosage: 25 MG, QD
     Route: 048
  7. SIMVASTATIN [Concomitant]
     Indication: BLOOD CHOLESTEROL INCREASED
     Dosage: 10 MG, QD
  8. PLAVIX [Concomitant]
     Dosage: 75 MG, QD
  9. ASPIRIN [Concomitant]
     Dosage: 81 MG, QD

REACTIONS (1)
  - MUSCLE SPASMS [None]
